FAERS Safety Report 25030794 (Version 1)
Quarter: 2025Q1

REPORT INFORMATION
  Report Type: Spontaneous
  Country: HU (occurrence: HU)
  Receive Date: 20250303
  Receipt Date: 20250303
  Transmission Date: 20250409
  Serious: Yes (Other)
  Sender: ROCHE
  Company Number: HU-ROCHE-10000213456

PATIENT
  Age: 33 Year
  Sex: Female

DRUGS (2)
  1. CELLCEPT [Suspect]
     Active Substance: MYCOPHENOLATE MOFETIL
     Indication: Systemic lupus erythematosus
     Route: 065
  2. HYDROXYCHLOROQUINE DIPHOSPHATE [Suspect]
     Active Substance: HYDROXYCHLOROQUINE DIPHOSPHATE
     Indication: Product used for unknown indication
     Route: 065

REACTIONS (10)
  - Speech disorder [Unknown]
  - Muscle fatigue [Unknown]
  - Dysphagia [Recovered/Resolved]
  - Swelling face [Unknown]
  - Eyelid ptosis [Unknown]
  - Asthenia [Unknown]
  - Chest discomfort [Unknown]
  - Micturition urgency [Unknown]
  - Limb discomfort [Unknown]
  - Fatigue [Unknown]
